FAERS Safety Report 10066870 (Version 1)
Quarter: 2014Q2

REPORT INFORMATION
  Report Type: Spontaneous
  Country: CA (occurrence: CA)
  Receive Date: 20140408
  Receipt Date: 20140408
  Transmission Date: 20141212
  Serious: Yes (Other)
  Sender: FDA-Public Use
  Company Number: CA-AMGEN-CANSP2014024419

PATIENT
  Age: 60 Year
  Sex: Male

DRUGS (1)
  1. NEUPOGEN [Suspect]
     Indication: NEOPLASM MALIGNANT
     Dosage: 1ML/300MCG
     Route: 065
     Dates: start: 20140329

REACTIONS (2)
  - Chest pain [Unknown]
  - Neck pain [Unknown]
